FAERS Safety Report 8859116 (Version 4)
Quarter: 2013Q1

REPORT INFORMATION
  Report Type: Report from Study
  Country: AU (occurrence: AU)
  Receive Date: 20121024
  Receipt Date: 20130206
  Transmission Date: 20140127
  Serious: Yes (Other)
  Sender: FDA-Public Use
  Company Number: AU-CELGENEUS-008-21880-12102320

PATIENT
  Age: 72 Year
  Sex: Female
  Weight: 92.1 kg

DRUGS (11)
  1. REVLIMID\PLACEBO [Suspect]
     Indication: DIFFUSE LARGE B-CELL LYMPHOMA
     Dosage: 5 MILLIGRAM
     Route: 048
     Dates: start: 20120516
  2. REVLIMID\PLACEBO [Suspect]
     Route: 048
     Dates: end: 20121012
  3. REVLIMID\PLACEBO [Suspect]
     Dosage: 5 MILLIGRAM
     Route: 048
     Dates: start: 20120919, end: 20121017
  4. DIGOXIN [Concomitant]
     Indication: ATRIAL FIBRILLATION
     Route: 065
     Dates: start: 1996
  5. LASIX [Concomitant]
     Indication: HYPERTENSION
     Route: 065
     Dates: start: 1958
  6. STELAZINE [Concomitant]
     Indication: ANXIETY
     Route: 065
     Dates: start: 1990
  7. ISOPTIN [Concomitant]
     Indication: HYPERTENSION
     Route: 065
  8. THYROXINE [Concomitant]
     Indication: HYPOTHYROIDISM
     Route: 065
     Dates: start: 1986
  9. PANADOL-OSTEO [Concomitant]
     Indication: OSTEOARTHRITIS
     Route: 065
     Dates: start: 201109
  10. VALTREX [Concomitant]
     Indication: HERPES ZOSTER
     Route: 065
     Dates: start: 201110
  11. ALLOPURINOL [Concomitant]
     Indication: GOUT
     Route: 065
     Dates: start: 20120822

REACTIONS (2)
  - Colon adenoma [Recovered/Resolved]
  - Colon adenoma [Recovered/Resolved]
